FAERS Safety Report 15646430 (Version 2)
Quarter: 2020Q1

REPORT INFORMATION
  Report Type: Spontaneous
  Country: NL (occurrence: NL)
  Receive Date: 20181122
  Receipt Date: 20200313
  Transmission Date: 20200409
  Serious: Yes (Other)
  Sender: FDA-Public Use
  Company Number: NL-ROCHE-2219103

PATIENT
  Sex: Female
  Weight: 87 kg

DRUGS (1)
  1. LUCENTIS [Suspect]
     Active Substance: RANIBIZUMAB
     Indication: NEOVASCULAR AGE-RELATED MACULAR DEGENERATION
     Dosage: RECENT DOSE ON /MAR/2018
     Route: 065
     Dates: start: 200808, end: 201803

REACTIONS (1)
  - Dementia [Recovered/Resolved]

NARRATIVE: CASE EVENT DATE: 20180612
